FAERS Safety Report 8912546 (Version 1)
Quarter: 2012Q4

REPORT INFORMATION
  Report Type: 
  Country: JP (occurrence: JP)
  Receive Date: 20121116
  Receipt Date: 20121116
  Transmission Date: 20130627
  Serious: Yes (Other)
  Sender: FDA-Public Use
  Company Number: JP-JNJFOC-20121010615

PATIENT
  Age: 8 None
  Sex: Male

DRUGS (3)
  1. METHYLPHENIDATE HYDROCHLORIDE [Suspect]
     Indication: SOMNOLENCE
     Route: 048
  2. RITALIN [Suspect]
     Indication: SOMNOLENCE
     Route: 048
  3. MORPHINE [Concomitant]
     Indication: PAIN MANAGEMENT
     Route: 065

REACTIONS (2)
  - Neuroleptic malignant syndrome [Recovering/Resolving]
  - Off label use [Unknown]
